FAERS Safety Report 20510769 (Version 2)
Quarter: 2025Q2

REPORT INFORMATION
  Report Type: Spontaneous
  Country: US (occurrence: US)
  Receive Date: 20220224
  Receipt Date: 20250621
  Transmission Date: 20250716
  Serious: Yes (Life-Threatening, Other)
  Sender: AUROBINDO
  Company Number: US-MLMSERVICE-20220210-3368006-1

PATIENT
  Age: 62 Year
  Sex: Male

DRUGS (12)
  1. DOCETAXEL [Suspect]
     Active Substance: DOCETAXEL
     Indication: HER2 positive gastric cancer
     Route: 065
     Dates: start: 201908, end: 201909
  2. DOCETAXEL [Suspect]
     Active Substance: DOCETAXEL
     Indication: Oesophageal adenocarcinoma
  3. DOCETAXEL [Suspect]
     Active Substance: DOCETAXEL
     Indication: Adenocarcinoma gastric
  4. FLUOROURACIL [Suspect]
     Active Substance: FLUOROURACIL
     Indication: Adenocarcinoma gastric
     Route: 065
     Dates: start: 201908, end: 201909
  5. FLUOROURACIL [Suspect]
     Active Substance: FLUOROURACIL
     Indication: HER2 positive gastric cancer
  6. FLUOROURACIL [Suspect]
     Active Substance: FLUOROURACIL
     Indication: Oesophageal adenocarcinoma
  7. OXALIPLATIN [Suspect]
     Active Substance: OXALIPLATIN
     Indication: Adenocarcinoma gastric
     Route: 065
     Dates: start: 201908, end: 201909
  8. OXALIPLATIN [Suspect]
     Active Substance: OXALIPLATIN
     Indication: HER2 positive gastric cancer
  9. OXALIPLATIN [Suspect]
     Active Substance: OXALIPLATIN
     Indication: Oesophageal adenocarcinoma
  10. LEUCOVORIN [Suspect]
     Active Substance: LEUCOVORIN\LEUCOVORIN CALCIUM
     Indication: HER2 positive gastric cancer
     Route: 065
     Dates: start: 201908, end: 201909
  11. LEUCOVORIN [Suspect]
     Active Substance: LEUCOVORIN\LEUCOVORIN CALCIUM
     Indication: Oesophageal adenocarcinoma
  12. LEUCOVORIN [Suspect]
     Active Substance: LEUCOVORIN\LEUCOVORIN CALCIUM
     Indication: Adenocarcinoma gastric

REACTIONS (2)
  - Neutropenic colitis [Recovered/Resolved]
  - Hepatitis [Recovered/Resolved]

NARRATIVE: CASE EVENT DATE: 20190901
